FAERS Safety Report 4855422-1 (Version None)
Quarter: 2005Q4

REPORT INFORMATION
  Report Type: 
  Country: None (occurrence: None)
  Receive Date: 20051125
  Receipt Date: 20050224
  Transmission Date: 20060501
  Serious: Yes (Hospitalization)
  Sender: FDA-Public Use
  Company Number: US-JNJFOC-20050200531

PATIENT
  Age: 65 Year
  Sex: Male

DRUGS (7)
  1. LEVAQUIN [Suspect]
     Indication: WOUND INFECTION
     Dosage: 750 MG
  2. LENTE INSULIN [Concomitant]
  3. LOPRESSOR [Concomitant]
  4. TRICOR [Concomitant]
  5. ASPIRIN [Concomitant]
  6. DIOVAN [Concomitant]
  7. AMARYL [Concomitant]

REACTIONS (1)
  - VASCULITIS [None]
